FAERS Safety Report 4268193-7 (Version None)
Quarter: 2004Q1

REPORT INFORMATION
  Report Type: 
  Country: None (occurrence: None)
  Receive Date: 20040109
  Receipt Date: 20031205
  Transmission Date: 20041129
  Serious: Yes (Life-Threatening, Hospitalization)
  Sender: FDA-Public Use
  Company Number: WAES 0312USA00808

PATIENT
  Age: 75 Year
  Sex: Female
  Weight: 56 kg

DRUGS (4)
  1. PROPRANOLOL HYDROCHLORIDE [Concomitant]
  2. VIOXX [Suspect]
     Indication: ABDOMINAL PAIN LOWER
     Route: 048
     Dates: start: 20011218, end: 20011219
  3. VIOXX [Suspect]
     Indication: GROIN PAIN
     Route: 048
     Dates: start: 20011218, end: 20011219
  4. DIOVAN [Concomitant]

REACTIONS (10)
  - BLOOD PRESSURE INCREASED [None]
  - DIARRHOEA [None]
  - FALL [None]
  - FIBROMYALGIA [None]
  - HEADACHE [None]
  - NAIL DISCOLOURATION [None]
  - OSTEOPOROSIS [None]
  - PARAESTHESIA [None]
  - PERIPHERAL COLDNESS [None]
  - TRANSIENT ISCHAEMIC ATTACK [None]
